FAERS Safety Report 7246879-X (Version None)
Quarter: 2011Q1

REPORT INFORMATION
  Report Type: 
  Country: None (occurrence: None)
  Receive Date: 20110127
  Receipt Date: 20110113
  Transmission Date: 20110831
  Serious: Yes (Hospitalization, Other)
  Sender: FDA-Public Use
  Company Number: DE-ELI_LILLY_AND_COMPANY-DE201101003271

PATIENT
  Sex: Female

DRUGS (8)
  1. SPIRONOLACTONE [Concomitant]
  2. ANTIHYPERTENSIVES [Concomitant]
  3. TRANSTEC [Concomitant]
     Dosage: 70 UG/H, UNK
  4. HEPARIN [Concomitant]
  5. LYRICA [Concomitant]
  6. FORTEO [Suspect]
     Indication: OSTEOPOROSIS
     Route: 058
     Dates: start: 20101118
  7. IRON [Concomitant]
  8. PANTOZOL [Concomitant]

REACTIONS (4)
  - HOSPITALISATION [None]
  - ARTHROPATHY [None]
  - HIP SURGERY [None]
  - CYSTITIS [None]
